FAERS Safety Report 18433284 (Version 2)
Quarter: 2020Q4

REPORT INFORMATION
  Report Type: Spontaneous
  Country: JP (occurrence: JP)
  Receive Date: 20201028
  Receipt Date: 20201130
  Transmission Date: 20210114
  Serious: Yes (Other)
  Sender: FDA-Public Use
  Company Number: JP-SA-2020SA300650

PATIENT

DRUGS (12)
  1. NEORAL [Concomitant]
     Active Substance: CYCLOSPORINE
     Dosage: 100 MG, QOD
     Route: 048
     Dates: start: 20180822, end: 20180903
  2. RUPAFIN [Concomitant]
     Active Substance: RUPATADINE FUMARATE
     Dosage: 1 DF, QD
     Route: 048
     Dates: start: 20181211
  3. NEORAL [Concomitant]
     Active Substance: CYCLOSPORINE
     Dosage: 50 MG, QOD
     Route: 048
     Dates: start: 20180823, end: 20180904
  4. RUPAFIN [Concomitant]
     Active Substance: RUPATADINE FUMARATE
     Indication: DERMATITIS ATOPIC
     Dosage: 2 DF, QD
     Route: 048
     Dates: start: 20180605, end: 20181210
  5. DUPIXENT [Suspect]
     Active Substance: DUPILUMAB
     Indication: DERMATITIS ATOPIC
     Dosage: 300 MG, QOW
     Route: 058
     Dates: start: 20180821, end: 20190205
  6. NEORAL [Concomitant]
     Active Substance: CYCLOSPORINE
     Indication: DERMATITIS ATOPIC
     Dosage: 100 MG, QD
     Route: 048
     Dates: start: 20130826, end: 20180821
  7. DUPIXENT [Suspect]
     Active Substance: DUPILUMAB
     Dosage: 600 MG, 1X
     Route: 058
     Dates: start: 20180806, end: 20180806
  8. NEORAL [Concomitant]
     Active Substance: CYCLOSPORINE
     Dosage: 50 MG
     Route: 048
     Dates: start: 20180905, end: 20180918
  9. DEXCHLORPHENIRAMINE MALEATE. [Concomitant]
     Active Substance: DEXCHLORPHENIRAMINE MALEATE
     Indication: DERMATITIS ATOPIC
     Dosage: 1 DF, QD
     Route: 048
     Dates: start: 20180904
  10. LASIX [Concomitant]
     Active Substance: FUROSEMIDE
     Indication: OEDEMA
     Dosage: 40 MG, QD
     Route: 048
     Dates: start: 20120608
  11. NEORAL [Concomitant]
     Active Substance: CYCLOSPORINE
     Dosage: UNK
     Route: 048
     Dates: start: 20180919
  12. TEPRENONE [Concomitant]
     Active Substance: TEPRENONE
     Indication: GASTRITIS
     Dosage: 2 DF, BID
     Route: 048
     Dates: start: 20180703

REACTIONS (5)
  - Myalgia [Recovering/Resolving]
  - Pain [Not Recovered/Not Resolved]
  - Pyrexia [Not Recovered/Not Resolved]
  - Pain of skin [Not Recovered/Not Resolved]
  - Polymyalgia rheumatica [Not Recovered/Not Resolved]

NARRATIVE: CASE EVENT DATE: 201902
